FAERS Safety Report 5719521-4 (Version None)
Quarter: 2008Q2

REPORT INFORMATION
  Report Type: 
  Country: None (occurrence: None)
  Receive Date: 20080425
  Receipt Date: 20080425
  Transmission Date: 20081010
  Serious: No
  Sender: FDA-Public Use
  Company Number: None

PATIENT
  Sex: Female
  Weight: 91.6266 kg

DRUGS (1)
  1. ZOCOR [Suspect]
     Indication: HYPERLIPIDAEMIA
     Dosage: ONCE TAB DAILY PO
     Route: 048
     Dates: start: 20080201, end: 20080401

REACTIONS (2)
  - DIZZINESS [None]
  - MENTAL STATUS CHANGES [None]
